FAERS Safety Report 8437653 (Version 2)
Quarter: 2012Q4

REPORT INFORMATION
  Report Type: 
  Country: JP (occurrence: JP)
  Receive Date: 20120302
  Receipt Date: 20121016
  Transmission Date: 20130627
  Serious: Yes (Death)
  Sender: FDA-Public Use
  Company Number: JP-SANOFI-AVENTIS-2011SA080719

PATIENT
  Age: 78 Year
  Sex: Female
  Weight: 72 kg

DRUGS (8)
  1. CLEXANE [Suspect]
     Indication: DEEP VENOUS THROMBOSIS PROPHYLAXIS
     Route: 058
     Dates: start: 20111004, end: 20111013
  2. HYPEN [Suspect]
     Indication: ANALGESIC THERAPY
     Route: 048
     Dates: start: 20111002, end: 20111015
  3. VOLTAREN [Suspect]
     Indication: ANALGESIC THERAPY
     Route: 065
     Dates: start: 20111004, end: 20111015
  4. MUCOSTA [Concomitant]
     Dosage: form: POR
  5. SENNOSIDE A+B [Concomitant]
     Route: 048
  6. FERROUS SULFATE [Concomitant]
     Route: 048
  7. DEPAS [Concomitant]
     Dosage: form: POR
     Route: 048
  8. AUGMENTIN [Concomitant]
     Route: 048

REACTIONS (2)
  - Heparin-induced thrombocytopenia [Fatal]
  - Cerebral haemorrhage [Fatal]
